FAERS Safety Report 10265781 (Version 1)
Quarter: 2014Q2

REPORT INFORMATION
  Report Type: Spontaneous
  Country: US (occurrence: US)
  Receive Date: 20140627
  Receipt Date: 20140627
  Transmission Date: 20141212
  Serious: Yes (Other)
  Sender: FDA-Public Use
  Company Number: US-GLAXOSMITHKLINE-A1077849A

PATIENT
  Age: 71 Year
  Sex: Male

DRUGS (8)
  1. VOTRIENT [Suspect]
     Indication: RENAL CELL CARCINOMA
     Dosage: 800MG PER DAY
     Route: 048
     Dates: start: 20140524
  2. ZOFRAN [Suspect]
     Indication: NAUSEA
     Route: 065
  3. COMPAZINE [Suspect]
     Indication: NAUSEA
     Route: 065
  4. HYDROCODONE [Suspect]
     Indication: PAIN
     Route: 065
  5. WARFARIN [Concomitant]
  6. LEVOTHYROXINE [Concomitant]
  7. DIGOXIN [Concomitant]
  8. FLOMAX [Concomitant]

REACTIONS (8)
  - Atrial fibrillation [Unknown]
  - Diarrhoea [Recovering/Resolving]
  - Constipation [Recovering/Resolving]
  - Nausea [Recovering/Resolving]
  - Vomiting [Not Recovered/Not Resolved]
  - Asthenia [Recovering/Resolving]
  - Fatigue [Recovering/Resolving]
  - Decreased appetite [Not Recovered/Not Resolved]
